FAERS Safety Report 9974663 (Version 1)
Quarter: 2014Q1

REPORT INFORMATION
  Report Type: Report from Study
  Country: US (occurrence: US)
  Receive Date: 20140306
  Receipt Date: 20140306
  Transmission Date: 20141002
  Serious: No
  Sender: FDA-Public Use
  Company Number: US-ABBVIE-13P-163-1159429-00

PATIENT
  Age: 67 Year
  Sex: Female
  Weight: 93.52 kg

DRUGS (3)
  1. HUMIRA [Suspect]
     Indication: CROHN^S DISEASE
     Dates: start: 20131007, end: 20131007
  2. LIALDA [Concomitant]
     Indication: CROHN^S DISEASE
  3. ALBUTEROL [Concomitant]
     Indication: ASTHMA

REACTIONS (1)
  - Injection site pain [Recovered/Resolved]
